FAERS Safety Report 9323172 (Version 1)
Quarter: 2013Q2

REPORT INFORMATION
  Report Type: Spontaneous
  Country: US (occurrence: US)
  Receive Date: 20130603
  Receipt Date: 20130603
  Transmission Date: 20140414
  Serious: No
  Sender: FDA-Public Use
  Company Number: US-BIOGENIDEC-2013BI048407

PATIENT
  Sex: Female

DRUGS (2)
  1. AVONEX [Suspect]
     Indication: MULTIPLE SCLEROSIS
     Route: 030
  2. SEIZURE MEDICATION [Concomitant]

REACTIONS (9)
  - Cataract [Not Recovered/Not Resolved]
  - Hallucination [Recovered/Resolved]
  - Gait disturbance [Recovered/Resolved]
  - Tinnitus [Recovered/Resolved]
  - Speech disorder [Unknown]
  - Fall [Recovered/Resolved]
  - Thermal burn [Recovered/Resolved]
  - Incontinence [Recovered/Resolved]
  - Pyrexia [Recovered/Resolved]
